FAERS Safety Report 12289618 (Version 1)
Quarter: 2016Q2

REPORT INFORMATION
  Report Type: Spontaneous
  Country: US (occurrence: None)
  Receive Date: 20160420
  Receipt Date: 20160420
  Transmission Date: 20160815
  Serious: No
  Sender: FDA-Public Use
  Company Number: None

PATIENT
  Age: 66 Year
  Sex: Male

DRUGS (6)
  1. ADVIL [Concomitant]
     Active Substance: IBUPROFEN
  2. LOSARTAN. [Concomitant]
     Active Substance: LOSARTAN
  3. LOMEPRAZOLE [Concomitant]
  4. HARVONI [Suspect]
     Active Substance: LEDIPASVIR\SOFOSBUVIR
     Indication: HEPATITIS C
     Dosage: 1 TAB DAILY PO
     Route: 048
     Dates: start: 20160304
  5. ASPRIN [Concomitant]
     Active Substance: ASPIRIN
  6. FISH OIL [Concomitant]
     Active Substance: FISH OIL

REACTIONS (3)
  - Fatigue [None]
  - Irritability [None]
  - Headache [None]

NARRATIVE: CASE EVENT DATE: 20160326
